FAERS Safety Report 5556250-4 (Version None)
Quarter: 2007Q4

REPORT INFORMATION
  Report Type: 
  Country: None (occurrence: None)
  Receive Date: 20071130
  Receipt Date: 20071123
  Transmission Date: 20080405
  Serious: Yes (Hospitalization)
  Sender: FDA-Public Use
  Company Number: WAES 0710NLD00049

PATIENT
  Age: 49 Year

DRUGS (3)
  1. TAB RALTEGRAVIR POTASSIUM UNK [Suspect]
     Dates: start: 20071022
  2. ETRAVIRINE [Concomitant]
  3. TRUVADA [Concomitant]

REACTIONS (2)
  - CHEST X-RAY ABNORMAL [None]
  - DYSPNOEA [None]
